FAERS Safety Report 5909402-5 (Version None)
Quarter: 2008Q4

REPORT INFORMATION
  Report Type: 
  Country: None (occurrence: None)
  Receive Date: 20081006
  Receipt Date: 20080930
  Transmission Date: 20090506
  Serious: No
  Sender: FDA-Public Use
  Company Number: US-B.I. PHARMACEUTICALS,INC./RIDGEFIELD-2008-BP-14012BP

PATIENT
  Sex: Female

DRUGS (10)
  1. MIRAPEX [Suspect]
     Indication: BIPOLAR I DISORDER
     Dosage: .5NR
     Route: 048
     Dates: start: 20080723, end: 20080818
  2. MIRAPEX [Suspect]
     Route: 048
     Dates: start: 20080819, end: 20080904
  3. AVAPRO [Concomitant]
     Dosage: 300MG
  4. LIPITOR [Concomitant]
     Dosage: 10MG
  5. SAM-E [Concomitant]
     Dosage: 400MG
     Route: 048
     Dates: start: 20080205
  6. FISH OIL [Concomitant]
     Dosage: 1200MG
  7. CYMBALTA [Concomitant]
     Dosage: 20MG
     Route: 048
     Dates: start: 20070731
  8. ASPIRIN [Concomitant]
     Dosage: 81MG
  9. XANAX [Concomitant]
     Indication: ANXIETY
     Dates: start: 20060421
  10. ZOLPIDEM [Concomitant]
     Dosage: 10MG
     Route: 048
     Dates: start: 20080512

REACTIONS (7)
  - ASTHENIA [None]
  - DIZZINESS [None]
  - HYPOTENSION [None]
  - INSOMNIA [None]
  - NAUSEA [None]
  - SOMNOLENCE [None]
  - SUDDEN ONSET OF SLEEP [None]
